FAERS Safety Report 23411439 (Version 1)
Quarter: 2024Q1

REPORT INFORMATION
  Report Type: Spontaneous
  Country: US (occurrence: None)
  Receive Date: 20240117
  Receipt Date: 20240117
  Transmission Date: 20240409
  Serious: No
  Sender: FDA-Public Use
  Company Number: None

PATIENT
  Sex: Female

DRUGS (1)
  1. EMGALITY [Suspect]
     Active Substance: GALCANEZUMAB-GNLM
     Dosage: FREQUENCY : MONTHLY;?
     Route: 058
     Dates: start: 202308

REACTIONS (2)
  - Drug ineffective [None]
  - Therapy cessation [None]
